FAERS Safety Report 22948254 (Version 2)
Quarter: 2024Q4

REPORT INFORMATION
  Report Type: Report from Study
  Country: CA (occurrence: CA)
  Receive Date: 20230915
  Receipt Date: 20241217
  Transmission Date: 20250115
  Serious: Yes (Other)
  Sender: BIOCON
  Company Number: CA-MYLANLABS-2023M1097367

PATIENT

DRUGS (3)
  1. HULIO [Suspect]
     Active Substance: ADALIMUMAB-FKJP
     Indication: Rheumatoid arthritis
     Dosage: 40 MILLIGRAM, BIWEEKLY, (EVERY 2 WEEKS)
     Route: 058
     Dates: start: 20230727, end: 20241031
  2. HULIO [Suspect]
     Active Substance: ADALIMUMAB-FKJP
  3. HULIO [Suspect]
     Active Substance: ADALIMUMAB-FKJP

REACTIONS (5)
  - Pneumonia [Unknown]
  - Speech disorder [Unknown]
  - Insomnia [Unknown]
  - Inflammation [Unknown]
  - Drug ineffective [Unknown]
